FAERS Safety Report 4369287-8 (Version None)
Quarter: 2004Q2

REPORT INFORMATION
  Report Type: 
  Country: None (occurrence: None)
  Receive Date: 20040601
  Receipt Date: 20040601
  Transmission Date: 20050107
  Serious: Yes (Other)
  Sender: FDA-Public Use
  Company Number: None

PATIENT
  Sex: Male

DRUGS (1)
  1. DURAGESIC [Suspect]
     Dosage: ONE PATCH 272
     Dates: start: 20040324

REACTIONS (4)
  - FEELING ABNORMAL [None]
  - FEELING COLD [None]
  - PHARMACEUTICAL PRODUCT COMPLAINT [None]
  - SOMNOLENCE [None]
